FAERS Safety Report 18226593 (Version 1)
Quarter: 2020Q3

REPORT INFORMATION
  Report Type: Spontaneous
  Country: US (occurrence: US)
  Receive Date: 20200902
  Receipt Date: 20200902
  Transmission Date: 20201103
  Serious: Yes (Hospitalization)
  Sender: FDA-Public Use
  Company Number: None

PATIENT
  Sex: Female

DRUGS (27)
  1. ALBUTEROL AER [Concomitant]
     Active Substance: ALBUTEROL
  2. AZITHROMYCIN ANHYDROUS. [Concomitant]
     Active Substance: AZITHROMYCIN ANHYDROUS
  3. CIPROFLOXACN [Concomitant]
     Active Substance: CIPROFLOXACIN
  4. ELIQUIS [Concomitant]
     Active Substance: APIXABAN
  5. LEVOCETIRIZI [Concomitant]
  6. TRESIBA FLEX [Concomitant]
  7. MYCOPHENOLIC 180MG DR TAB [Suspect]
     Active Substance: MYCOPHENOLIC ACID
     Indication: LIVER TRANSPLANT
     Route: 048
     Dates: start: 20180214
  8. LISINOPRIL. [Concomitant]
     Active Substance: LISINOPRIL
  9. MECLIZINE [Concomitant]
     Active Substance: MECLIZINE HYDROCHLORIDE
  10. TACROLIMUS. [Concomitant]
     Active Substance: TACROLIMUS
  11. TIZANIDINE. [Concomitant]
     Active Substance: TIZANIDINE
  12. ATORVASTATIN [Concomitant]
     Active Substance: ATORVASTATIN
  13. CEFDINIR. [Concomitant]
     Active Substance: CEFDINIR
  14. DIAZEPAM. [Concomitant]
     Active Substance: DIAZEPAM
  15. FLUTICASONE. [Concomitant]
     Active Substance: FLUTICASONE
  16. OXYCODONE AND ACETAMINOPHEN [Concomitant]
     Active Substance: ACETAMINOPHEN\OXYCODONE HYDROCHLORIDE
  17. SOLIFENACIN [Concomitant]
     Active Substance: SOLIFENACIN
  18. UROSODIOL [Concomitant]
  19. OXYBUTYNIN. [Concomitant]
     Active Substance: OXYBUTYNIN CHLORIDE
  20. CEPHALEXIN. [Concomitant]
     Active Substance: CEPHALEXIN
  21. OXYCODONE [Concomitant]
     Active Substance: OXYCODONE
  22. PANTOPRAZOLE [Concomitant]
     Active Substance: PANTOPRAZOLE
  23. PAROXETINE. [Concomitant]
     Active Substance: PAROXETINE
  24. ALLOPURINOL. [Concomitant]
     Active Substance: ALLOPURINOL
  25. AMOXICILLIN. [Concomitant]
     Active Substance: AMOXICILLIN
  26. JANUVIA [Concomitant]
     Active Substance: SITAGLIPTIN PHOSPHATE
  27. TAMSULOSIN [Concomitant]
     Active Substance: TAMSULOSIN

REACTIONS (1)
  - Renal surgery [None]
